FAERS Safety Report 7602681-8 (Version None)
Quarter: 2011Q3

REPORT INFORMATION
  Report Type: 
  Country: None (occurrence: None)
  Receive Date: 20110712
  Receipt Date: 20110628
  Transmission Date: 20111222
  Serious: Yes (Hospitalization)
  Sender: FDA-Public Use
  Company Number: DE-CELGENEUS-062-21880-10101783

PATIENT
  Age: 70 Year
  Sex: Male
  Weight: 87 kg

DRUGS (11)
  1. REVLIMID [Suspect]
     Dosage: 25 MILLIGRAM
     Route: 048
     Dates: start: 20091225, end: 20100103
  2. THALIDOMIDE [Suspect]
     Indication: MULTIPLE MYELOMA
     Route: 048
  3. MARCUMAR [Concomitant]
     Indication: PROPHYLAXIS
     Route: 065
     Dates: start: 20100101
  4. ISOPTIN [Concomitant]
     Route: 065
  5. DIGITOXIN TAB [Concomitant]
     Route: 065
  6. REVLIMID [Suspect]
     Indication: MULTIPLE MYELOMA
     Dosage: 25 MILLIGRAM
     Route: 048
     Dates: start: 20091127, end: 20091211
  7. REVLIMID [Suspect]
     Dosage: 25 MILLIGRAM
     Route: 048
     Dates: start: 20100112, end: 20100114
  8. PREDNISOLONE [Suspect]
     Indication: MULTIPLE MYELOMA
     Dosage: 40 MILLIGRAM
     Route: 065
     Dates: start: 20091127, end: 20091212
  9. PREDNISOLONE [Suspect]
     Dosage: 40 MILLIGRAM
     Route: 065
     Dates: start: 20091225
  10. LEVOFLOXACIN [Concomitant]
     Dosage: 500 MILLIGRAM
     Route: 065
     Dates: end: 20091231
  11. TORSEMIDE [Concomitant]
     Route: 065

REACTIONS (2)
  - PNEUMONIA [None]
  - GENERAL PHYSICAL HEALTH DETERIORATION [None]
